FAERS Safety Report 17480936 (Version 1)
Quarter: 2020Q1

REPORT INFORMATION
  Report Type: Report from Study
  Country: None (occurrence: CO)
  Receive Date: 20200302
  Receipt Date: 20200302
  Transmission Date: 20200409
  Serious: Yes (Other)
  Sender: FDA-Public Use
  Company Number: CO-ABBVIE-19K-036-3188384-00

PATIENT
  Age: 49 Year
  Sex: Female
  Weight: 68 kg

DRUGS (2)
  1. HUMIRA [Suspect]
     Active Substance: ADALIMUMAB
     Indication: RHEUMATOID ARTHRITIS
     Route: 058
  2. HUMIRA [Suspect]
     Active Substance: ADALIMUMAB
     Indication: RHEUMATOID ARTHRITIS
     Route: 058
     Dates: start: 20140423

REACTIONS (10)
  - Cyst [Unknown]
  - Finger deformity [Recovering/Resolving]
  - Arthralgia [Recovering/Resolving]
  - Migraine [Not Recovered/Not Resolved]
  - Musculoskeletal pain [Recovering/Resolving]
  - Tendonitis [Recovering/Resolving]
  - Influenza [Recovered/Resolved]
  - Stress [Unknown]
  - Headache [Recovered/Resolved]
  - Bursitis [Recovering/Resolving]

NARRATIVE: CASE EVENT DATE: 201907
